FAERS Safety Report 10637661 (Version 1)
Quarter: 2014Q4

REPORT INFORMATION
  Report Type: Spontaneous
  Country: US (occurrence: None)
  Receive Date: 20141205
  Receipt Date: 20141205
  Transmission Date: 20150529
  Serious: Yes (Disabling)
  Sender: FDA-Public Use
  Company Number: None

PATIENT
  Age: 50 Year
  Sex: Female
  Weight: 77.11 kg

DRUGS (1)
  1. ZZZQUIL NIGHTTIME SLEEP-AID [Suspect]
     Active Substance: DIPHENHYDRAMINE HYDROCHLORIDE
     Indication: SLEEP DISORDER
     Dosage: OVER COUNTER TOOK JUST 1 DOSE
     Route: 048

REACTIONS (4)
  - Hypoaesthesia [None]
  - Breast pain [None]
  - Coordination abnormal [None]
  - Swollen tongue [None]

NARRATIVE: CASE EVENT DATE: 20141204
